FAERS Safety Report 8709166 (Version 3)
Quarter: 2012Q4

REPORT INFORMATION
  Report Type: 
  Country: US (occurrence: US)
  Receive Date: 20120806
  Receipt Date: 20121010
  Transmission Date: 20130627
  Serious: No
  Sender: FDA-Public Use
  Company Number: US-009507513-1207USA009484

PATIENT
  Age: 20 Year
  Sex: Female

DRUGS (2)
  1. NEXPLANON [Suspect]
     Indication: CONTRACEPTION
     Dosage: UNK
     Dates: start: 20120719, end: 20120719
  2. NEXPLANON [Suspect]
     Dosage: UNK
     Dates: start: 20120719

REACTIONS (2)
  - Device difficult to use [Recovered/Resolved]
  - No adverse event [Recovered/Resolved]
